FAERS Safety Report 9636131 (Version 1)
Quarter: 2013Q4

REPORT INFORMATION
  Report Type: Spontaneous
  Country: IT (occurrence: None)
  Receive Date: 20131017
  Receipt Date: 20131017
  Transmission Date: 20140711
  Serious: Yes (Death)
  Sender: FDA-Public Use
  Company Number: 2013P1020234

PATIENT
  Age: 55 Year
  Sex: Male

DRUGS (2)
  1. SODIUM POLYSTYRENE SULFONATE [Suspect]
     Indication: HYPERKALAEMIA
     Route: 048
  2. ANTIBIOTICS [Concomitant]

REACTIONS (5)
  - Bronchopneumonia [None]
  - Pleural effusion [None]
  - Pulmonary congestion [None]
  - Lung consolidation [None]
  - No therapeutic response [None]
